FAERS Safety Report 21541583 (Version 1)
Quarter: 2022Q4

REPORT INFORMATION
  Report Type: Spontaneous
  Country: None (occurrence: US)
  Receive Date: 20221102
  Receipt Date: 20221102
  Transmission Date: 20230112
  Serious: No
  Sender: FDA-Public Use
  Company Number: US-Breckenridge Pharmaceutical, Inc.-2134402

PATIENT

DRUGS (1)
  1. ASENAPINE [Suspect]
     Active Substance: ASENAPINE
     Route: 060

REACTIONS (2)
  - Drug ineffective [Unknown]
  - Therapeutic product ineffective [Unknown]
